FAERS Safety Report 21157508 (Version 1)
Quarter: 2022Q3

REPORT INFORMATION
  Report Type: Spontaneous
  Country: US (occurrence: None)
  Receive Date: 20220801
  Receipt Date: 20220801
  Transmission Date: 20221027
  Serious: No
  Sender: FDA-Public Use
  Company Number: None

PATIENT
  Age: 53 Year
  Sex: Female

DRUGS (2)
  1. MAVENCLAD [Suspect]
     Active Substance: CLADRIBINE
     Indication: Multiple sclerosis
     Dosage: ?10MG-TWICE ON DAY ONE, THEN 10MG DAILY FOR FOUR DAYS
     Route: 048
     Dates: start: 20220602
  2. MAVENCLAD [Suspect]
     Active Substance: CLADRIBINE
     Dosage: OTHER FREQUENCY : DAILY 4 DAYS;?
     Route: 048

REACTIONS (1)
  - Multiple sclerosis relapse [None]

NARRATIVE: CASE EVENT DATE: 20220721
